FAERS Safety Report 8000623-7 (Version None)
Quarter: 2011Q4

REPORT INFORMATION
  Report Type: 
  Country: None (occurrence: None)
  Receive Date: 20111216
  Receipt Date: 20111202
  Transmission Date: 20120403
  Serious: Yes (Other)
  Sender: FDA-Public Use
  Company Number: 2011294860

PATIENT
  Age: 70 Year
  Sex: Male
  Weight: 58 kg

DRUGS (1)
  1. FRAGMIN [Suspect]
     Indication: LUNG NEOPLASM MALIGNANT
     Dosage: 10000 IU, 1X/DAY

REACTIONS (2)
  - SYNCOPE [None]
  - DIZZINESS [None]
